FAERS Safety Report 24776191 (Version 1)
Quarter: 2024Q4

REPORT INFORMATION
  Report Type: Spontaneous
  Country: ES (occurrence: ES)
  Receive Date: 20241226
  Receipt Date: 20241226
  Transmission Date: 20250115
  Serious: Yes (Other)
  Sender: SAMSUNG BIOEPIS
  Company Number: None

PATIENT
  Age: 62 Year
  Sex: Male

DRUGS (8)
  1. IMRALDI [Suspect]
     Active Substance: ADALIMUMAB
     Indication: Psoriasis
     Dosage: 40MG/0.8ML;
     Route: 058
     Dates: start: 20240717
  2. SYNJARDY [Concomitant]
     Active Substance: EMPAGLIFLOZIN\METFORMIN HYDROCHLORIDE
     Indication: Type 2 diabetes mellitus
     Dosage: 5MG/1000MG; 60 TABLETS
     Route: 048
     Dates: start: 20240212
  3. TRULICITY [Concomitant]
     Active Substance: DULAGLUTIDE
     Indication: Product used for unknown indication
     Dosage: 1.5 MG 4 PRE-FILLED PENS;
     Route: 058
     Dates: start: 20240212
  4. TOUJEO [Concomitant]
     Active Substance: INSULIN GLARGINE
     Indication: Product used for unknown indication
     Dosage: 300 UNITS/ML, 3 PENS 1.5 ML;
     Route: 058
     Dates: start: 20240126
  5. LORAZEPAM [Concomitant]
     Active Substance: LORAZEPAM
     Indication: Product used for unknown indication
     Dosage: 1 MG EFG TABLETS 25 TABLETS;
     Route: 048
     Dates: start: 20220727
  6. ENSTILAR [Concomitant]
     Active Substance: BETAMETHASONE DIPROPIONATE\CALCIPOTRIENE HYDRATE
     Indication: Product used for unknown indication
     Dosage: 50 MICROGRAMS/G PLUS 0.5MG/G, SKIN FOAM, 60 G;
     Route: 061
     Dates: start: 20231228
  7. PREDNISONE [Concomitant]
     Active Substance: PREDNISONE
     Indication: Product used for unknown indication
     Dosage: 30 MG EFG TABLETS, 30 TABLETS;
     Route: 048
     Dates: start: 20220707
  8. EBASTINE [Concomitant]
     Active Substance: EBASTINE
     Indication: Product used for unknown indication
     Dosage: 20 LYOPHILIZED;
     Route: 048
     Dates: start: 20220707

REACTIONS (2)
  - Erectile dysfunction [Unknown]
  - Libido decreased [Unknown]

NARRATIVE: CASE EVENT DATE: 20240918
